FAERS Safety Report 6176169-8 (Version None)
Quarter: 2009Q2

REPORT INFORMATION
  Report Type: 
  Country: None (occurrence: None)
  Receive Date: 20090501
  Receipt Date: 20090427
  Transmission Date: 20091009
  Serious: Yes (Other)
  Sender: FDA-Public Use
  Company Number: CN-JNJFOC-20090406265

PATIENT

DRUGS (2)
  1. INFANTS TYLENOL [Suspect]
     Route: 048
  2. INFANTS TYLENOL [Suspect]
     Indication: PYREXIA
     Route: 048

REACTIONS (2)
  - DRUG INEFFECTIVE [None]
  - PRODUCT COUNTERFEIT [None]
